FAERS Safety Report 7778365-2 (Version None)
Quarter: 2011Q3

REPORT INFORMATION
  Report Type: 
  Country: None (occurrence: None)
  Receive Date: 20110926
  Receipt Date: 20110913
  Transmission Date: 20111222
  Serious: Yes (Hospitalization)
  Sender: FDA-Public Use
  Company Number: US-BAYER-2011-013480

PATIENT
  Age: 40 Year
  Sex: Female
  Weight: 61 kg

DRUGS (12)
  1. ZICAM [Concomitant]
  2. YAZ [Suspect]
     Indication: PREMENSTRUAL SYNDROME
     Dosage: UNK
     Route: 048
     Dates: start: 20080201, end: 20090112
  3. NSAID'S [Concomitant]
  4. YAZ [Suspect]
  5. SUDAFED 12 HOUR [Concomitant]
  6. ZYRTEC [Concomitant]
     Dosage: 10 MG, QD
     Route: 048
  7. YASMIN [Suspect]
  8. ZYRTEC [Concomitant]
     Dosage: 10 MG, PRN
     Route: 048
  9. WOMEN'S ONE A DAY [Concomitant]
     Dosage: UNK
     Dates: start: 19990101, end: 20080101
  10. CALTRATE 600 [Concomitant]
  11. TUMS WITH CALCIUM [Concomitant]
     Dosage: UNK
     Dates: start: 20000101, end: 20090101
  12. YASMIN [Suspect]
     Indication: PREMENSTRUAL SYNDROME
     Dosage: UNK
     Route: 048
     Dates: start: 20040101, end: 20060101

REACTIONS (6)
  - INJURY [None]
  - GENERAL PHYSICAL HEALTH DETERIORATION [None]
  - EMOTIONAL DISTRESS [None]
  - ANXIETY [None]
  - DEEP VEIN THROMBOSIS [None]
  - PAIN [None]
